FAERS Safety Report 15003879 (Version 2)
Quarter: 2018Q3

REPORT INFORMATION
  Report Type: Spontaneous
  Country: DE (occurrence: DE)
  Receive Date: 20180613
  Receipt Date: 20180724
  Transmission Date: 20181010
  Serious: Yes (Hospitalization)
  Sender: FDA-Public Use
  Company Number: DE-TEVA-2018-DE-904701

PATIENT
  Age: 83 Year
  Sex: Male
  Weight: 62 kg

DRUGS (13)
  1. IBUPROFEN. [Suspect]
     Active Substance: IBUPROFEN
     Dosage: 1?1?1?0,
     Route: 048
  2. AMANTADIN [Concomitant]
     Active Substance: AMANTADINE
     Dosage: 1?0?0?0,
     Route: 048
  3. L?THYROXIN [Concomitant]
     Active Substance: LEVOTHYROXINE SODIUM
     Dosage: 1?0?0?0,
     Route: 048
  4. PANTOPRAZOL [Concomitant]
     Active Substance: PANTOPRAZOLE SODIUM
     Dosage: 1?0?0?0,
     Route: 048
  5. ACETYLSALICYLSAEURE [Concomitant]
     Active Substance: ASPIRIN
     Dosage: 1?0?0?0,
     Route: 048
  6. ENOXAPARIN [Concomitant]
     Active Substance: ENOXAPARIN
     Dosage: 3000 IE, 1?0?0?0, INJECTION/INFUSION SOLUTION
     Route: 058
  7. ENALAPRIL COMP [Suspect]
     Active Substance: ENALAPRIL MALEATE\HYDROCHLOROTHIAZIDE
     Dosage: 10|25 MG, 1?0?0?0,
     Route: 048
  8. VIGANTOLETTEN 1000I.E. [Concomitant]
     Dosage: 1000 IE, 1?0?0?0,
     Route: 048
  9. CITALOPRAM [Concomitant]
     Active Substance: CITALOPRAM HYDROBROMIDE
     Dosage: 1?0?0?0,
     Route: 048
  10. TOREM [Suspect]
     Active Substance: TORSEMIDE
     Dosage: 1?0?0?0,
     Route: 048
  11. NEBIVOLOL. [Concomitant]
     Active Substance: NEBIVOLOL
     Dosage: 1?0?0?0,
     Route: 048
  12. ENALAPRIL [Suspect]
     Active Substance: ENALAPRIL
     Dosage: 0?0?1?0,
     Route: 048
  13. AMIODARON [Concomitant]
     Active Substance: AMIODARONE
     Dosage: 0.5?0?0?0,
     Route: 048

REACTIONS (4)
  - General physical health deterioration [Unknown]
  - Renal impairment [Unknown]
  - Hypokalaemia [Unknown]
  - Acute kidney injury [Unknown]
